FAERS Safety Report 15311203 (Version 1)
Quarter: 2018Q3

REPORT INFORMATION
  Report Type: Spontaneous
  Country: US (occurrence: US)
  Receive Date: 20180823
  Receipt Date: 20180823
  Transmission Date: 20181010
  Serious: Yes (Hospitalization)
  Sender: FDA-Public Use
  Company Number: US-TAKEDA-2018TUS025398

PATIENT
  Age: 55 Year
  Sex: Male

DRUGS (1)
  1. ENTYVIO [Suspect]
     Active Substance: VEDOLIZUMAB
     Indication: COLITIS ULCERATIVE
     Dosage: UNK
     Route: 042
     Dates: start: 201801

REACTIONS (3)
  - Pyrexia [Recovered/Resolved]
  - Musculoskeletal pain [Not Recovered/Not Resolved]
  - Therapeutic reaction time decreased [Unknown]

NARRATIVE: CASE EVENT DATE: 201808
